FAERS Safety Report 9509493 (Version 2)
Quarter: 2013Q3

REPORT INFORMATION
  Report Type: Spontaneous
  Country: US (occurrence: US)
  Receive Date: 20130909
  Receipt Date: 20130909
  Transmission Date: 20140515
  Serious: Yes (Death)
  Sender: FDA-Public Use
  Company Number: US-BRISTOL-MYERS SQUIBB COMPANY-18941997

PATIENT
  Age: 40 Year
  Sex: Male

DRUGS (1)
  1. ABILIFY TABS 2 MG [Suspect]

REACTIONS (1)
  - Completed suicide [Fatal]
